FAERS Safety Report 8143619-7 (Version None)
Quarter: 2012Q1

REPORT INFORMATION
  Report Type: 
  Country: None (occurrence: None)
  Receive Date: 20120217
  Receipt Date: 20120110
  Transmission Date: 20120608
  Serious: No
  Sender: FDA-Public Use
  Company Number: US-GLAXOSMITHKLINE-A0960794A

PATIENT
  Age: 56 Year
  Sex: Male

DRUGS (4)
  1. VOTRIENT [Suspect]
     Indication: NEOPLASM MALIGNANT
     Dosage: 2TAB PER DAY
     Route: 048
     Dates: start: 20111202
  2. LEVOTHYROXINE SODIUM [Concomitant]
  3. VITAMIN E [Concomitant]
  4. FISH OIL [Concomitant]

REACTIONS (5)
  - CONSTIPATION [None]
  - MUSCLE SPASMS [None]
  - DEHYDRATION [None]
  - DECREASED APPETITE [None]
  - DYSPEPSIA [None]
